FAERS Safety Report 26201506 (Version 1)
Quarter: 2025Q4

REPORT INFORMATION
  Report Type: Report from Study
  Country: PK (occurrence: PK)
  Receive Date: 20251226
  Receipt Date: 20251226
  Transmission Date: 20260118
  Serious: Yes (Death, Other)
  Sender: ROCHE
  Company Number: PK-ROCHE-10000467883

PATIENT
  Age: 27 Year
  Sex: Female

DRUGS (1)
  1. AVASTIN [Suspect]
     Active Substance: BEVACIZUMAB
     Indication: Colorectal cancer metastatic
     Route: 041
     Dates: start: 20250915

REACTIONS (3)
  - Respiratory failure [Fatal]
  - Metastasis [Fatal]
  - Asphyxia [Unknown]

NARRATIVE: CASE EVENT DATE: 20251101
